FAERS Safety Report 17934541 (Version 1)
Quarter: 2020Q2

REPORT INFORMATION
  Report Type: Spontaneous
  Country: US (occurrence: US)
  Receive Date: 20200624
  Receipt Date: 20200624
  Transmission Date: 20200714
  Serious: No
  Sender: FDA-Public Use
  Company Number: US-GLENMARK PHARMACEUTICALS-2020GMK047832

PATIENT

DRUGS (1)
  1. ZOLMITRIPTAN TABLETS USP, 2.5 MG [Suspect]
     Active Substance: ZOLMITRIPTAN
     Indication: MIGRAINE
     Dosage: 2.5 MILLIGRAM (ONCE A DAY AND REPEAT AFTER 2 HOURS IF NEEDED)
     Route: 048
     Dates: start: 20200511

REACTIONS (9)
  - Arthralgia [Unknown]
  - Headache [Unknown]
  - Vertigo [Unknown]
  - Discomfort [Unknown]
  - Swollen tongue [Unknown]
  - Neck pain [Unknown]
  - Nausea [Unknown]
  - Pain in jaw [Unknown]
  - Dizziness [Unknown]
